FAERS Safety Report 21801798 (Version 1)
Quarter: 2022Q4

REPORT INFORMATION
  Report Type: Spontaneous
  Country: TW (occurrence: TW)
  Receive Date: 20221230
  Receipt Date: 20221230
  Transmission Date: 20230113
  Serious: Yes (Other)
  Sender: FDA-Public Use
  Company Number: TW-ALLERGAN-2242678US

PATIENT
  Sex: Female

DRUGS (1)
  1. BOTULINUM TOXIN TYPE A [Suspect]
     Active Substance: BOTULINUM TOXIN TYPE A
     Indication: Skin wrinkling
     Dosage: UNK, SINGLE

REACTIONS (4)
  - Facial asymmetry [Not Recovered/Not Resolved]
  - Facial paresis [Recovering/Resolving]
  - Muscle atrophy [Not Recovered/Not Resolved]
  - Off label use [Unknown]
